FAERS Safety Report 7933794-9 (Version None)
Quarter: 2011Q4

REPORT INFORMATION
  Report Type: 
  Country: None (occurrence: None)
  Receive Date: 20111122
  Receipt Date: 20111107
  Transmission Date: 20120403
  Serious: Yes (Hospitalization, Other)
  Sender: FDA-Public Use
  Company Number: US-ROCHE-1012401

PATIENT

DRUGS (1)
  1. HERCEPTIN [Suspect]
     Indication: NON-SMALL CELL LUNG CANCER
     Dates: start: 19991110

REACTIONS (3)
  - PERIPHERAL MOTOR NEUROPATHY [None]
  - DEPRESSION [None]
  - URINARY RETENTION [None]
